FAERS Safety Report 9231168 (Version 1)
Quarter: 2013Q2

REPORT INFORMATION
  Report Type: Spontaneous
  Country: FR (occurrence: FR)
  Receive Date: 20130415
  Receipt Date: 20130415
  Transmission Date: 20140414
  Serious: Yes (Other)
  Sender: FDA-Public Use
  Company Number: PHHY2013FR034714

PATIENT
  Age: 54 Year
  Sex: Male

DRUGS (7)
  1. AZATHIOPRINE [Suspect]
     Dosage: 150 MG PER DAY
     Dates: start: 200504
  2. AZATHIOPRINE [Suspect]
     Dosage: 100 MG PER DAY
  3. PREDNISONE [Suspect]
     Dosage: 1 MG/KG PER DAY
     Dates: start: 201011
  4. PREDNISONE [Suspect]
     Dosage: 0.5 MG/KG PER DAY
  5. ADALIMUMAB [Suspect]
     Dosage: 160 MG
     Route: 058
  6. ADALIMUMAB [Suspect]
     Dosage: 80 MG
     Route: 058
  7. ADALIMUMAB [Suspect]
     Dosage: 40 MG
     Route: 058

REACTIONS (8)
  - Arthralgia [Unknown]
  - Myalgia [Unknown]
  - Pneumonia cryptococcal [Recovered/Resolved]
  - Decreased appetite [Unknown]
  - Cough [Recovered/Resolved]
  - Pyrexia [Recovered/Resolved]
  - Dyspnoea [Recovered/Resolved]
  - Chest pain [Recovered/Resolved]
